FAERS Safety Report 4291852-7 (Version None)
Quarter: 2004Q1

REPORT INFORMATION
  Report Type: 
  Country: None (occurrence: None)
  Receive Date: 20040211
  Receipt Date: 20030721
  Transmission Date: 20041129
  Serious: No
  Sender: FDA-Public Use
  Company Number: US-GLAXOSMITHKLINE-A0418246A

PATIENT
  Age: 48 Year
  Sex: Female
  Weight: 66.4 kg

DRUGS (6)
  1. IMITREX [Suspect]
     Indication: MIGRAINE
     Dosage: 100MG CUMULATIVE DOSE
     Route: 048
     Dates: start: 20030601
  2. ASPIRIN [Concomitant]
  3. CITRACAL [Concomitant]
  4. CENTRUM [Concomitant]
  5. ALLEGRA [Concomitant]
  6. LIPITOR [Concomitant]
     Route: 048
     Dates: start: 20030521

REACTIONS (3)
  - HEADACHE [None]
  - PRE-EXISTING CONDITION IMPROVED [None]
  - UNEXPECTED THERAPEUTIC DRUG EFFECT [None]
